FAERS Safety Report 10006341 (Version 1)
Quarter: 2014Q1

REPORT INFORMATION
  Report Type: Spontaneous
  Country: CH (occurrence: CH)
  Receive Date: 20140313
  Receipt Date: 20140313
  Transmission Date: 20141002
  Serious: Yes (Hospitalization, Other)
  Sender: FDA-Public Use
  Company Number: CH-009507513-1403CHE001865

PATIENT
  Age: 37 Year
  Sex: Female

DRUGS (12)
  1. REMERON [Suspect]
     Dosage: ONCE
     Route: 048
     Dates: start: 20131106, end: 20131106
  2. REMERON SOLTAB [Suspect]
     Dosage: 10 DF, ONCE
     Route: 048
     Dates: start: 20131108, end: 20131108
  3. DIAZEPAM [Suspect]
     Dosage: 225 MG, ONCE
     Route: 048
     Dates: start: 20131106, end: 20131106
  4. LISINOPRIL [Suspect]
     Dosage: 1 DF, ONCE
     Route: 048
     Dates: start: 20131106, end: 20131106
  5. CLORAZEPATE DIPOTASSIUM [Suspect]
     Dosage: 50 DOSAGE UNITS, ONCE
     Route: 048
     Dates: start: 20131108, end: 20131108
  6. CLORAZEPATE DIPOTASSIUM [Suspect]
     Dosage: 400 MG, ONCE
     Route: 048
     Dates: start: 20131106, end: 20131106
  7. AGOMELATINE [Suspect]
     Dosage: 30 DOSAGE UNITS, ONCE
     Route: 048
     Dates: start: 20131108, end: 20131108
  8. AGOMELATINE [Suspect]
     Dosage: 700 MG, ONCE
     Route: 048
     Dates: start: 20131106, end: 20131106
  9. OLANZAPINE [Suspect]
     Dosage: 225 MG, ONCE
     Route: 048
     Dates: start: 20131106, end: 20131106
  10. LEVOMEPROMAZINE [Suspect]
     Dosage: 250 MG, ONCE
     Route: 048
     Dates: start: 20131106, end: 20131106
  11. ALPRAZOLAM [Suspect]
     Dosage: 1 DF, ONCE
     Route: 048
     Dates: start: 20131106, end: 20131106
  12. FLURAZEPAM [Suspect]
     Dosage: 1 DF, ONCE
     Route: 048
     Dates: start: 20131106, end: 20131106

REACTIONS (11)
  - Coma [Recovered/Resolved]
  - Suicide attempt [Recovered/Resolved]
  - Suicide attempt [Recovered/Resolved]
  - Tachycardia [Recovered/Resolved]
  - Oxygen saturation decreased [Recovered/Resolved]
  - Electrocardiogram QT prolonged [Recovered/Resolved]
  - Hypotension [Recovered/Resolved]
  - Endotracheal intubation [Recovered/Resolved]
  - Poisoning [Recovered/Resolved]
  - Overdose [Unknown]
  - Overdose [Unknown]
